FAERS Safety Report 8552410-9 (Version None)
Quarter: 2012Q3

REPORT INFORMATION
  Report Type: 
  Country: None (occurrence: None)
  Receive Date: 20120731
  Receipt Date: 20120720
  Transmission Date: 20120928
  Serious: Yes (Hospitalization, Disabling)
  Sender: FDA-Public Use
  Company Number: FR-JNJFOC-20120519884

PATIENT
  Sex: Male

DRUGS (2)
  1. RISPERDAL CONSTA [Suspect]
     Indication: PSYCHOTIC DISORDER
     Route: 030
     Dates: start: 20110113, end: 20120525
  2. ATARAX [Concomitant]
     Indication: ANXIETY
     Route: 048
     Dates: start: 20120323

REACTIONS (2)
  - COMPARTMENT SYNDROME [None]
  - RHABDOMYOLYSIS [None]
